FAERS Safety Report 23599125 (Version 7)
Quarter: 2024Q4

REPORT INFORMATION
  Report Type: Spontaneous
  Country: CA (occurrence: CA)
  Receive Date: 20240306
  Receipt Date: 20241111
  Transmission Date: 20250115
  Serious: Yes (Hospitalization, Other)
  Sender: CELLTRION
  Company Number: CA-CELLTRION INC.-2024CA005368

PATIENT

DRUGS (6)
  1. INFLECTRA [Suspect]
     Active Substance: INFLIXIMAB-DYYB
     Indication: Crohn^s disease
     Dosage: 500 MG, AT INDUCTION WEEK 0 ,2, 6 WEEKS THEN MAINTENANCE EVERY 8 WEEKS
     Route: 042
     Dates: start: 20230607
  2. INFLECTRA [Suspect]
     Active Substance: INFLIXIMAB-DYYB
     Dosage: 500 MG, AT 0 ,2, 6 WEEKS THEN MAINTENANCE EVERY 8 WEEKS
     Route: 042
     Dates: start: 20240105
  3. INFLECTRA [Suspect]
     Active Substance: INFLIXIMAB-DYYB
     Dosage: 500 MG, AT 0 ,2, 6 WEEKS THEN MAINTENANCE EVERY 8 WEEKS
     Route: 042
     Dates: start: 20240314
  4. INFLECTRA [Suspect]
     Active Substance: INFLIXIMAB-DYYB
     Dosage: 500 MG, EVERY 8 WEEKS (AFTER 8 WEEKS AND 1 DAYS)
     Route: 042
     Dates: start: 20240510
  5. INFLECTRA [Suspect]
     Active Substance: INFLIXIMAB-DYYB
     Dosage: 500 MG, EVERY 8 WEEKS (INDUCTION WEEK 0 ,2, 6 THEN MAINTENANCE EVERY 8 WEEKS )
     Route: 042
     Dates: start: 20240828
  6. INFLECTRA [Suspect]
     Active Substance: INFLIXIMAB-DYYB
     Dosage: 500 MG, AFTER 8 WEEKS(EVERY 8 WEEKS, INDUCTION WEEK 0 ,2, 6 THEN MAINTENANCE EVERY 8 WEEKS )
     Route: 042
     Dates: start: 20241023

REACTIONS (6)
  - Pulmonary embolism [Recovered/Resolved]
  - Salmonellosis [Recovered/Resolved]
  - Thrombophlebitis [Recovered/Resolved]
  - Fatigue [Unknown]
  - Arthralgia [Recovered/Resolved]
  - Condition aggravated [Recovering/Resolving]

NARRATIVE: CASE EVENT DATE: 20240101
